FAERS Safety Report 24417731 (Version 1)
Quarter: 2024Q4

REPORT INFORMATION
  Report Type: Spontaneous
  Country: US (occurrence: US)
  Receive Date: 20241009
  Receipt Date: 20241009
  Transmission Date: 20250115
  Serious: Yes (Other)
  Sender: GLAXOSMITHKLINE
  Company Number: US-GSK-US2024121510

PATIENT
  Age: 74 Year
  Sex: Female

DRUGS (2)
  1. OJJAARA [Suspect]
     Active Substance: MOMELOTINIB DIHYDROCHLORIDE MONOHYDRATE
     Indication: Myeloproliferative neoplasm
     Dosage: UNK UNK, QD 200 ONCE DAILY BY MOUTH
     Route: 048
     Dates: start: 20240806, end: 20240904
  2. ANAGRELIDE [Concomitant]
     Active Substance: ANAGRELIDE
     Indication: Myeloproliferative neoplasm
     Dates: start: 20200914

REACTIONS (3)
  - Neuropathy peripheral [Not Recovered/Not Resolved]
  - Fatigue [Recovered/Resolved]
  - Asthenia [Recovered/Resolved]
